FAERS Safety Report 9854870 (Version 1)
Quarter: 2014Q1

REPORT INFORMATION
  Report Type: Spontaneous
  Country: US (occurrence: None)
  Receive Date: 20140127
  Receipt Date: 20140127
  Transmission Date: 20141002
  Serious: Yes (Death)
  Sender: FDA-Public Use
  Company Number: 2014P1000346

PATIENT
  Age: 67 Year
  Sex: Female

DRUGS (1)
  1. HEPARIN [Suspect]
     Indication: PULMONARY EMBOLISM

REACTIONS (7)
  - Bradycardia [None]
  - Hypotension [None]
  - Loss of consciousness [None]
  - Heart rate irregular [None]
  - Mediastinal haematoma [None]
  - Aortic dissection [None]
  - Arterial occlusive disease [None]
